FAERS Safety Report 8491491-8 (Version None)
Quarter: 2012Q3

REPORT INFORMATION
  Report Type: 
  Country: None (occurrence: None)
  Receive Date: 20120706
  Receipt Date: 20120628
  Transmission Date: 20120928
  Serious: Yes (Other)
  Sender: FDA-Public Use
  Company Number: JP-PFIZER INC-2012156304

PATIENT
  Age: 55 Year
  Sex: Male

DRUGS (2)
  1. VFEND [Suspect]
     Dosage: 400 MG, UNK
     Route: 048
     Dates: start: 20120501, end: 20120501
  2. VFEND [Suspect]
     Indication: BRONCHOPULMONARY ASPERGILLOSIS
     Dosage: 800 MG, UNK
     Route: 048
     Dates: start: 20120501, end: 20120501

REACTIONS (5)
  - EXOPHTHALMOS [None]
  - PHOTOPHOBIA [None]
  - HEADACHE [None]
  - MALAISE [None]
  - DECREASED APPETITE [None]
